FAERS Safety Report 5215673-3 (Version None)
Quarter: 2007Q1

REPORT INFORMATION
  Report Type: 
  Country: None (occurrence: None)
  Receive Date: 20070123
  Receipt Date: 20070112
  Transmission Date: 20070707
  Serious: Yes (Other)
  Sender: FDA-Public Use
  Company Number: GB-AVENTIS-200710458GDDC

PATIENT
  Age: 76 Year
  Sex: Female

DRUGS (4)
  1. RIFAMPICIN [Suspect]
     Indication: TUBERCULOSIS
     Dosage: DOSE: UNK
  2. ETHAMBUTOL HYDROCHLORIDE [Suspect]
     Indication: TUBERCULOSIS
     Dosage: DOSE: UNK
  3. ISONIAZID [Suspect]
     Indication: TUBERCULOSIS
     Dosage: DOSE: UNK
  4. PYRIZINAMIDE [Suspect]
     Indication: TUBERCULOSIS
     Dosage: DOSE: UNK

REACTIONS (2)
  - CHONDROCALCINOSIS PYROPHOSPHATE [None]
  - GOUT [None]
